FAERS Safety Report 7842565 (Version 3)
Quarter: 2012Q4

REPORT INFORMATION
  Report Type: 
  Country: US (occurrence: US)
  Receive Date: 20110306
  Receipt Date: 20121030
  Transmission Date: 20130627
  Serious: Yes (Hospitalization, Other)
  Sender: FDA-Public Use
  Company Number: US-B.I. PHARMACEUTICALS,INC./RIDGEFIELD-2011-BP-03593BP

PATIENT
  Age: 89 None
  Sex: Female

DRUGS (1)
  1. PRADAXA [Suspect]
     Dates: start: 20101207, end: 20110309

REACTIONS (10)
  - Intestinal haemorrhage [Unknown]
  - Asthenia [Unknown]
  - Apparent death [Unknown]
  - Oedema peripheral [Unknown]
  - Aphagia [Unknown]
  - Weight decreased [Unknown]
  - Gait disturbance [Not Recovered/Not Resolved]
  - Pain [Not Recovered/Not Resolved]
  - Injury [Unknown]
  - Pain [Unknown]
